FAERS Safety Report 4364766-1 (Version None)
Quarter: 2004Q2

REPORT INFORMATION
  Report Type: 
  Country: None (occurrence: None)
  Receive Date: 20040521
  Receipt Date: 20040503
  Transmission Date: 20050107
  Serious: Yes (Hospitalization)
  Sender: FDA-Public Use
  Company Number: US_0405102894

PATIENT
  Age: 38 Year
  Sex: Male

DRUGS (5)
  1. ZYPREXA [Suspect]
  2. LEXAPRO [Concomitant]
  3. DEPAKOTE [Concomitant]
  4. COCAINE [Concomitant]
  5. ALCOHOL [Concomitant]

REACTIONS (5)
  - COMA [None]
  - ELECTROCARDIOGRAM ST SEGMENT [None]
  - LEGAL PROBLEM [None]
  - MULTIPLE DRUG OVERDOSE [None]
  - SELF-MEDICATION [None]
